FAERS Safety Report 9945238 (Version 1)
Quarter: 2014Q1

REPORT INFORMATION
  Report Type: Report from Study
  Country: US (occurrence: US)
  Receive Date: 20140303
  Receipt Date: 20140303
  Transmission Date: 20141002
  Serious: No
  Sender: FDA-Public Use
  Company Number: US-ABBVIE-13P-163-1053530-00

PATIENT
  Age: 38 Year
  Sex: Female

DRUGS (2)
  1. HUMIRA [Suspect]
     Indication: PSORIASIS
     Dates: start: 20130211, end: 20130211
  2. HUMIRA [Suspect]
     Dates: start: 20130218

REACTIONS (2)
  - Incorrect product storage [Unknown]
  - Injection site pain [Unknown]
